FAERS Safety Report 18991760 (Version 1)
Quarter: 2021Q1

REPORT INFORMATION
  Report Type: Spontaneous
  Country: US (occurrence: US)
  Receive Date: 20210309
  Receipt Date: 20210309
  Transmission Date: 20210420
  Serious: Yes (Disabling)
  Sender: FDA-Public Use
  Company Number: None

PATIENT
  Age: 58 Year
  Sex: Male
  Weight: 74.25 kg

DRUGS (1)
  1. ISOSORBIDE MONONITRATE ER [Suspect]
     Active Substance: ISOSORBIDE MONONITRATE
     Indication: HYPERTENSION
     Dosage: ?          QUANTITY:1 TABLET(S);?
     Route: 048
     Dates: start: 20210129, end: 20210207

REACTIONS (5)
  - Headache [None]
  - Photophobia [None]
  - Diplopia [None]
  - Vision blurred [None]
  - Impaired work ability [None]

NARRATIVE: CASE EVENT DATE: 20210207
